FAERS Safety Report 21389836 (Version 1)
Quarter: 2022Q3

REPORT INFORMATION
  Report Type: Spontaneous
  Country: AF (occurrence: AF)
  Receive Date: 20220929
  Receipt Date: 20220929
  Transmission Date: 20221027
  Serious: Yes (Life-Threatening, Hospitalization, Other)
  Sender: FDA-Public Use
  Company Number: BE-BAXTER-2022BAX019457

PATIENT
  Age: 31 Year
  Sex: Female
  Weight: 46.5 kg

DRUGS (8)
  1. DEXTROSE MONOHYDRATE [Suspect]
     Active Substance: DEXTROSE MONOHYDRATE
     Indication: Renal injury
     Dosage: 500 ML TWICE DAILY AND INFUSION RATE ADAPTED TO HER STATUS (5 BAGS)
     Route: 042
     Dates: start: 20220626, end: 20220628
  2. DEXTROSE MONOHYDRATE [Suspect]
     Active Substance: DEXTROSE MONOHYDRATE
     Indication: Hepatic enzyme increased
  3. DEXTROSE MONOHYDRATE [Suspect]
     Active Substance: DEXTROSE MONOHYDRATE
     Indication: Drug-induced liver injury
  4. BEDAQUILINE [Suspect]
     Active Substance: BEDAQUILINE
     Indication: Tuberculosis
     Dosage: 200 MILLIGRAM (MG) 3 TIMES A WEEK
     Route: 048
     Dates: start: 20220303, end: 20220629
  5. CLOFAZIMINE [Suspect]
     Active Substance: CLOFAZIMINE
     Indication: Tuberculosis
     Dosage: 100 MILLIGRAM (MG) ONCE DAILY
     Route: 048
     Dates: start: 20220303, end: 20220629
  6. PYRAZINAMIDE [Suspect]
     Active Substance: PYRAZINAMIDE
     Indication: Tuberculosis
     Dosage: 1600 MILLIGRAM (MG) ONCE DAILY
     Route: 048
     Dates: start: 20220303, end: 20220629
  7. DELAMANID [Suspect]
     Active Substance: DELAMANID
     Indication: Tuberculosis
     Dosage: 100 MILLIGRAM (MG) TWICE DAILY
     Route: 048
     Dates: start: 20220303, end: 20220629
  8. LINEZOLID [Suspect]
     Active Substance: LINEZOLID
     Indication: Tuberculosis
     Dosage: 600 MILLIGRAM (MG) ONCE DAILY
     Route: 048
     Dates: start: 20220303, end: 20220629

REACTIONS (6)
  - Renal injury [Unknown]
  - Blood creatinine increased [Unknown]
  - Creatinine renal clearance decreased [Unknown]
  - Anaphylactoid reaction [Recovered/Resolved]
  - Chills [Recovered/Resolved]
  - Pyrexia [Recovered/Resolved]

NARRATIVE: CASE EVENT DATE: 20220626
